FAERS Safety Report 12461285 (Version 1)
Quarter: 2016Q2

REPORT INFORMATION
  Report Type: Spontaneous
  Country: GB (occurrence: GB)
  Receive Date: 20160613
  Receipt Date: 20160613
  Transmission Date: 20160815
  Serious: Yes (Other)
  Sender: FDA-Public Use
  Company Number: GB-TEVA-667361ISR

PATIENT
  Age: 37 Year
  Sex: Female

DRUGS (3)
  1. AMIODARONE [Suspect]
     Active Substance: AMIODARONE
  2. LIDOCAINE. [Suspect]
     Active Substance: LIDOCAINE
  3. EPINEPHRINE. [Suspect]
     Active Substance: EPINEPHRINE

REACTIONS (3)
  - Ventricular tachycardia [Unknown]
  - Sensitisation [Unknown]
  - Bradycardia [Unknown]
